FAERS Safety Report 8365278-0 (Version None)
Quarter: 2012Q1

REPORT INFORMATION
  Report Type: 
  Country: None (occurrence: None)
  Receive Date: 20120323
  Receipt Date: 20110720
  Transmission Date: 20120608
  Serious: Yes (Disabling)
  Sender: FDA-Public Use
  Company Number: 163-21880-11041174

PATIENT
  Age: 79 Year
  Sex: Female
  Weight: 53.9 kg

DRUGS (2)
  1. ARIMIDEX [Concomitant]
  2. REVLIMID [Suspect]
     Indication: MYELODYSPLASTIC SYNDROME
     Dosage: 5 ML, 1 IN 1 D, PO
     Route: 048
     Dates: start: 20100708

REACTIONS (2)
  - LIP SWELLING [None]
  - CHAPPED LIPS [None]
